FAERS Safety Report 4630966-6 (Version None)
Quarter: 2005Q2

REPORT INFORMATION
  Report Type: 
  Country: None (occurrence: None)
  Receive Date: 20050406
  Receipt Date: 20050406
  Transmission Date: 20051028
  Serious: No
  Sender: FDA-Public Use
  Company Number: None

PATIENT
  Sex: Female
  Weight: 53.5 kg

DRUGS (5)
  1. CISPLATIN [Suspect]
     Dosage: 100MG/M2 I.V. ON DAYS 1, 22 AND 43.
     Route: 042
     Dates: start: 20041202
  2. IMRT [Suspect]
  3. FLUOROURACIL [Suspect]
     Dosage: 1,000 MG/M2 PER 24 HOURS AS A 96 HOUR CONTINUOUS INFUSION ON DAYS 71-74, 99-102, AND 127-130
  4. ATIVAN [Concomitant]
  5. XANAX [Concomitant]

REACTIONS (3)
  - DEHYDRATION [None]
  - NAUSEA [None]
  - VOMITING [None]
